FAERS Safety Report 23897603 (Version 1)
Quarter: 2024Q2

REPORT INFORMATION
  Report Type: Spontaneous
  Country: CA (occurrence: CA)
  Receive Date: 20240524
  Receipt Date: 20240524
  Transmission Date: 20240715
  Serious: Yes (Other)
  Sender: FDA-Public Use
  Company Number: CA-GE HEALTHCARE-2024CSU005114

PATIENT
  Age: 74 Year
  Sex: Female

DRUGS (1)
  1. OMNIPAQUE [Suspect]
     Active Substance: IOHEXOL
     Indication: Drug provocation test
     Dosage: 10 ML, TOTAL
     Route: 065

REACTIONS (4)
  - Cutaneous vasculitis [Recovered/Resolved]
  - Skin burning sensation [Recovered/Resolved]
  - Purpura [Recovered/Resolved]
  - Rash erythematous [Recovered/Resolved]
